FAERS Safety Report 9337939 (Version 1)
Quarter: 2013Q2

REPORT INFORMATION
  Report Type: Spontaneous
  Country: US (occurrence: US)
  Receive Date: 20130609
  Receipt Date: 20130609
  Transmission Date: 20140414
  Serious: No
  Sender: FDA-Public Use
  Company Number: US-TEVA-407429USA

PATIENT
  Age: 80 Year
  Sex: Male
  Weight: 72.64 kg

DRUGS (3)
  1. QNASL [Suspect]
     Indication: COUGH
     Dates: start: 20130515
  2. BENICAR [Concomitant]
     Indication: HYPERTENSION
  3. PRILOSEC [Concomitant]
     Indication: GASTROOESOPHAGEAL REFLUX DISEASE

REACTIONS (2)
  - Drug ineffective [Recovered/Resolved]
  - Therapeutic response unexpected [Not Recovered/Not Resolved]
